FAERS Safety Report 25535164 (Version 2)
Quarter: 2025Q3

REPORT INFORMATION
  Report Type: Spontaneous
  Country: EU (occurrence: EU)
  Receive Date: 20250709
  Receipt Date: 20250804
  Transmission Date: 20251021
  Serious: Yes (Death, Hospitalization, Other)
  Sender: TEVA
  Company Number: EU-TEVA-VS-3349041

PATIENT
  Age: 70 Year
  Sex: Male

DRUGS (1)
  1. METFORMIN [Suspect]
     Active Substance: METFORMIN HYDROCHLORIDE
     Indication: Product used for unknown indication
     Route: 065

REACTIONS (5)
  - Renal failure [Fatal]
  - Acute kidney injury [Unknown]
  - Lactic acidosis [Unknown]
  - Toxicity to various agents [Unknown]
  - Multiple organ dysfunction syndrome [Fatal]
